FAERS Safety Report 24719527 (Version 2)
Quarter: 2024Q4

REPORT INFORMATION
  Report Type: Spontaneous
  Country: CN (occurrence: CN)
  Receive Date: 20241211
  Receipt Date: 20241226
  Transmission Date: 20250115
  Serious: Yes (Hospitalization)
  Sender: NOVO NORDISK
  Company Number: CN-NOVOPROD-1330074

PATIENT
  Age: 76 Year
  Sex: Female
  Weight: 62 kg

DRUGS (5)
  1. NOVOLIN R [Suspect]
     Active Substance: INSULIN HUMAN
     Indication: Type 2 diabetes mellitus
     Dosage: 20 IU, QD (IN THE MORNING)
  2. NOVOLIN R [Suspect]
     Active Substance: INSULIN HUMAN
     Dosage: 30 IU, QD(20 UNITS IN THE MORNING,10 UNITS IN THE EVENING)
     Dates: start: 2020
  3. NOVOLIN R [Suspect]
     Active Substance: INSULIN HUMAN
     Dosage: 25 IU, QD(15 UNITS IN THE MORNING AND 10 UNITS IN THE EVENING)(CURRENT DOSE)
     Dates: start: 202411
  4. DAPAGLIFLOZIN [Concomitant]
     Active Substance: DAPAGLIFLOZIN
     Indication: Type 2 diabetes mellitus
     Dosage: 38 IU, QD (20 IN THE MORNING AND 18 AT NIGHT)
  5. METFORMIN [Concomitant]
     Active Substance: METFORMIN HYDROCHLORIDE
     Indication: Type 2 diabetes mellitus
     Dosage: 38 IU, QD (20 IN THE MORNING AND 18 AT NIGHT)

REACTIONS (3)
  - Gastritis [Not Recovered/Not Resolved]
  - Blood pressure increased [Not Recovered/Not Resolved]
  - Blood glucose increased [Not Recovered/Not Resolved]

NARRATIVE: CASE EVENT DATE: 20241128
